FAERS Safety Report 7290269-0 (Version None)
Quarter: 2011Q1

REPORT INFORMATION
  Report Type: 
  Country: None (occurrence: None)
  Receive Date: 20110208
  Receipt Date: 20110208
  Transmission Date: 20110831
  Serious: No
  Sender: FDA-Public Use
  Company Number: None

PATIENT
  Sex: Female
  Weight: 99.7913 kg

DRUGS (1)
  1. OXYCONTIN [Suspect]
     Dosage: 40MG + PO BID

REACTIONS (1)
  - NO ADVERSE EVENT [None]
